FAERS Safety Report 8774328 (Version 2)
Quarter: 2012Q4

REPORT INFORMATION
  Report Type: 
  Country: US (occurrence: US)
  Receive Date: 20120907
  Receipt Date: 20120927
  Transmission Date: 20130627
  Serious: No
  Sender: FDA-Public Use
  Company Number: US-PFIZER INC-2012215878

PATIENT
  Age: 43 Year

DRUGS (99)
  1. EFFEXOR [Suspect]
     Dosage: UNK
  2. NEURONTIN [Suspect]
     Dosage: 600 mg, 3x/day
     Route: 048
  3. AMOXICILLIN [Suspect]
     Dosage: UNK
  4. IBUPROFEN [Suspect]
     Dosage: UNK
  5. PHENYTOIN [Suspect]
     Dosage: UNK
  6. FEXOFENADINE HYDROCHLORIDE [Suspect]
     Dosage: UNK
  7. FLURBIPROFEN [Suspect]
     Dosage: UNK
  8. KETOPROFEN [Suspect]
     Dosage: UNK
  9. KETOROLAC TROMETHAMINE [Suspect]
     Dosage: UNK
  10. LODINE [Suspect]
     Dosage: UNK
  11. MECLOFENAMATE SODIUM [Suspect]
     Dosage: UNK
  12. MECLOMEN [Suspect]
     Dosage: UNK
  13. MEFENAMIC ACID [Suspect]
     Dosage: UNK
  14. METHOCARBAMOL [Suspect]
     Dosage: UNK
  15. MOMENTUM [Suspect]
     Dosage: UNK
  16. MOTRIN [Suspect]
     Dosage: UNK
  17. NABUMETONE [Suspect]
     Dosage: UNK
  18. NAPROXEN SODIUM [Suspect]
     Dosage: UNK
  19. OMNICEF [Suspect]
     Dosage: UNK
  20. PONSTEL [Suspect]
     Dosage: UNK
  21. PRAVASTATIN SODIUM [Suspect]
     Dosage: UNK
  22. EFFEXOR XR [Suspect]
     Dosage: UNK
  23. VALERIAN ROOT [Suspect]
     Dosage: UNK
  24. ADVIL [Suspect]
     Dosage: UNK
  25. ANACIN [Suspect]
     Dosage: UNK
  26. ANSAID [Suspect]
     Dosage: UNK
  27. CELEBREX [Suspect]
     Dosage: UNK
  28. DICLOFENAC [Suspect]
     Dosage: UNK
  29. DIMETAPP SINUS [Suspect]
     Dosage: UNK
  30. CEFADROXIL [Suspect]
     Dosage: UNK
  31. DRISTAN 12 HR NASAL SPRAY [Suspect]
     Dosage: UNK
  32. DAYPRO [Suspect]
     Dosage: UNK
  33. CECLOR [Suspect]
     Dosage: UNK
  34. KEFLEX [Suspect]
     Dosage: UNK
  35. ASPIRIN [Suspect]
     Dosage: UNK
  36. LEXAPRO [Suspect]
     Dosage: UNK
  37. AUGMENTIN [Suspect]
     Dosage: UNK
  38. QUINIDINE [Suspect]
     Dosage: UNK
  39. PRAVACHOL [Suspect]
     Dosage: UNK
  40. TIZANIDINE [Suspect]
     Dosage: UNK
  41. ZANAFLEX [Suspect]
     Dosage: UNK
  42. CYMBALTA [Suspect]
     Dosage: UNK
  43. ALLEGRA [Suspect]
     Dosage: UNK
  44. MAXZIDE [Concomitant]
     Dosage: UNK
  45. ACULAR [Suspect]
     Dosage: UNK
  46. ALEVE [Suspect]
     Dosage: UNK
  47. ALKA-SELTZER HEARTBURN [Suspect]
     Dosage: UNK
  48. ANAPROX [Suspect]
     Dosage: UNK
  49. ASCRIPTIN [Suspect]
     Dosage: UNK
  50. ASPIRIN ^BAYER^ [Suspect]
     Dosage: UNK
  51. BUFFERIN [Suspect]
     Dosage: UNK
  52. CAMA [Suspect]
     Dosage: UNK
  53. CATAFLAM [Suspect]
     Dosage: UNK
  54. CEFACLOR [Suspect]
     Dosage: UNK
  55. CEPHALEXIN [Suspect]
     Dosage: UNK
  56. FELDINE [Suspect]
     Dosage: UNK
  57. FENOPROFEN [Suspect]
     Dosage: UNK
  58. FIORINAL [Suspect]
     Dosage: UNK
  59. HALTRAN [Suspect]
     Dosage: UNK
  60. IBUPRIN [Suspect]
     Dosage: UNK
  61. INDOCIN [Suspect]
     Dosage: UNK
  62. INDOMETHACIN [Suspect]
     Dosage: UNK
  63. MEDIPREN [Suspect]
     Dosage: UNK
  64. MOXATAG [Suspect]
     Dosage: UNK
  65. NALFON [Suspect]
     Dosage: UNK
  66. NAPRELAN [Suspect]
     Dosage: UNK
  67. NAPROSYN [Suspect]
     Dosage: UNK
  68. NAPROXEN [Suspect]
     Dosage: UNK
  69. NORFLEX [Suspect]
     Dosage: UNK
  70. NORGESIC [Suspect]
     Dosage: UNK
  71. NUPRIN [Suspect]
     Dosage: UNK
  72. OCUFEN [Suspect]
     Dosage: UNK
  73. ORPHENADRINE [Suspect]
     Dosage: UNK
  74. ORUDIS [Suspect]
     Dosage: UNK
  75. ORUVAIL [Suspect]
     Dosage: UNK
  76. PAMPRIN [Suspect]
     Dosage: UNK
  77. PEPTO-BISMOL [Suspect]
     Dosage: UNK
  78. PERCODAN [Suspect]
     Dosage: UNK
  79. PRINCIPEN [Suspect]
     Dosage: UNK
  80. PROFENAL [Suspect]
     Dosage: UNK
  81. PROPOXYPHENE [Suspect]
     Dosage: UNK
  82. EQUAGESIC [Suspect]
     Dosage: UNK
  83. ECOTRIN [Suspect]
     Dosage: UNK
  84. EMPIRIN [Suspect]
     Dosage: UNK
  85. CLINORIL [Suspect]
     Dosage: UNK
  86. CEFTIN [Suspect]
     Dosage: UNK
  87. AGGRENOX [Suspect]
     Dosage: UNK
  88. COMBUNOX [Suspect]
     Dosage: UNK
  89. CONGESPIRIN [Suspect]
     Dosage: UNK
  90. DARVON [Suspect]
     Dosage: UNK
  91. DULOXETINE [Suspect]
     Dosage: UNK
  92. NEXIUM [Concomitant]
     Dosage: UNK
  93. VENTOLIN [Concomitant]
     Dosage: UNK
  94. LORATADINE [Concomitant]
     Dosage: UNK
  95. MAXALT [Concomitant]
     Dosage: UNK
  96. TRAZODONE [Concomitant]
     Dosage: UNK
  97. OMEPRAZOLE [Concomitant]
     Dosage: UNK
  98. ADVAIR [Concomitant]
     Dosage: UNK
  99. FLUOXETINE [Concomitant]
     Dosage: UNK

REACTIONS (1)
  - Drug hypersensitivity [Unknown]
